FAERS Safety Report 7590709-3 (Version None)
Quarter: 2011Q3

REPORT INFORMATION
  Report Type: 
  Country: None (occurrence: None)
  Receive Date: 20110705
  Receipt Date: 20110628
  Transmission Date: 20111222
  Serious: Yes (Hospitalization)
  Sender: FDA-Public Use
  Company Number: CA-B.I. PHARMACEUTICALS,INC./RIDGEFIELD-2011-CN-00866CN

PATIENT
  Sex: Male

DRUGS (8)
  1. FUROSEMIDE [Concomitant]
  2. PRADAXA [Suspect]
     Dates: start: 20110511, end: 20110620
  3. RAMIPRIL [Concomitant]
  4. NITRO-DUR [Concomitant]
  5. BISOPROLOL FUMARATE [Concomitant]
  6. TECTA [Concomitant]
  7. ATROVENT [Suspect]
     Indication: RHINITIS
     Route: 045
  8. DIGOXIN [Concomitant]

REACTIONS (3)
  - INTRA-ABDOMINAL HAEMORRHAGE [None]
  - ASTHENIA [None]
  - HYPOTENSION [None]
